FAERS Safety Report 6221346-0 (Version None)
Quarter: 2009Q2

REPORT INFORMATION
  Report Type: 
  Country: None (occurrence: None)
  Receive Date: 20090608
  Receipt Date: 20090601
  Transmission Date: 20091009
  Serious: Yes (Life-Threatening)
  Sender: FDA-Public Use
  Company Number: 2009US002008

PATIENT
  Age: 67 Year
  Sex: Female

DRUGS (2)
  1. AMBISOME [Suspect]
     Indication: FUNGAL INFECTION
     Dosage: 100 MG, UIQ/QD, IV NOS
     Route: 042
     Dates: start: 20090430, end: 20090512
  2. TARGOCID [Suspect]
     Indication: DRUG USE FOR UNKNOWN INDICATION
     Dosage: /D, IV NOS
     Route: 042
     Dates: end: 20090513

REACTIONS (1)
  - DISSEMINATED INTRAVASCULAR COAGULATION [None]
